FAERS Safety Report 4390126-3 (Version None)
Quarter: 2004Q2

REPORT INFORMATION
  Report Type: 
  Country: None (occurrence: None)
  Receive Date: 20040630
  Receipt Date: 20040616
  Transmission Date: 20050107
  Serious: Yes (Other)
  Sender: FDA-Public Use
  Company Number: GB-JNJFOC-20040604368

PATIENT
  Age: 59 Year
  Sex: Female
  Weight: 61 kg

DRUGS (2)
  1. TOPAMAX [Suspect]
     Indication: EPILEPSY
     Dosage: 50 MG, 2 IN 1 DAY; ORAL
     Route: 048
     Dates: start: 20040225
  2. LAMOTRIGINE [Concomitant]

REACTIONS (3)
  - ANOREXIA [None]
  - FEELING ABNORMAL [None]
  - PARAESTHESIA [None]
